FAERS Safety Report 24341218 (Version 2)
Quarter: 2024Q3

REPORT INFORMATION
  Report Type: Spontaneous
  Country: DE (occurrence: DE)
  Receive Date: 20240919
  Receipt Date: 20240924
  Transmission Date: 20241017
  Serious: Yes (Other)
  Sender: ABBVIE
  Company Number: DE-ABBVIE-5927344

PATIENT
  Age: 39 Year
  Sex: Female

DRUGS (1)
  1. HUMIRA [Suspect]
     Active Substance: ADALIMUMAB
     Indication: Crohn^s disease
     Route: 058
     Dates: start: 202103, end: 202108

REACTIONS (7)
  - Seizure [Unknown]
  - Intracranial mass [Unknown]
  - Myocardial infarction [Unknown]
  - Mycobacterium test positive [Unknown]
  - Gastrointestinal fistula [Unknown]
  - Terminal ileitis [Unknown]
  - Disseminated tuberculosis [Unknown]

NARRATIVE: CASE EVENT DATE: 20210901
